FAERS Safety Report 5727886-2 (Version None)
Quarter: 2008Q2

REPORT INFORMATION
  Report Type: 
  Country: None (occurrence: None)
  Receive Date: 20080430
  Receipt Date: 20080414
  Transmission Date: 20081010
  Serious: Yes (Other)
  Sender: FDA-Public Use
  Company Number: DSA_31745_2008

PATIENT
  Age: 64 Year
  Sex: Male

DRUGS (4)
  1. ENALAPRIL MALEATE [Suspect]
     Indication: DRUG USE FOR UNKNOWN INDICATION
     Dosage: 5 MG
  2. HYDROCHLOROTHIAZIDE [Suspect]
     Indication: DRUG USE FOR UNKNOWN INDICATION
     Dosage: DF
  3. MEMANTINE HCL [Concomitant]
  4. POTASSIUM CHLORIDE [Concomitant]

REACTIONS (5)
  - HYPERTENSION [None]
  - HYPOKALAEMIA [None]
  - MEMORY IMPAIRMENT [None]
  - PRIMARY HYPERALDOSTERONISM [None]
  - RENIN DECREASED [None]
